FAERS Safety Report 12878500 (Version 1)
Quarter: 2016Q4

REPORT INFORMATION
  Report Type: Spontaneous
  Country: DE (occurrence: DE)
  Receive Date: 20161024
  Receipt Date: 20161024
  Transmission Date: 20170207
  Serious: Yes (Other)
  Sender: FDA-Public Use
  Company Number: DE-BAYER-2016-202492

PATIENT
  Age: 45 Year
  Sex: Female
  Weight: 59 kg

DRUGS (1)
  1. QLAIRA FILMTABLETTEN [Suspect]
     Active Substance: DIENOGEST\ESTRADIOL VALERATE
     Indication: ENDOMETRIOSIS
     Dosage: 1 DF, QD
     Route: 048
     Dates: start: 2015

REACTIONS (5)
  - Myalgia [None]
  - Off label use [None]
  - Pain in extremity [None]
  - Blood oestrogen increased [None]
  - Pyrexia [None]
